FAERS Safety Report 20611281 (Version 1)
Quarter: 2022Q1

REPORT INFORMATION
  Report Type: Spontaneous
  Country: US (occurrence: US)
  Receive Date: 20220318
  Receipt Date: 20220318
  Transmission Date: 20220424
  Serious: Yes (Other)
  Sender: FDA-Public Use
  Company Number: US-drreddys-LIT/USA/22/0147868

PATIENT
  Age: 55 Year
  Sex: Female

DRUGS (1)
  1. DIVALPROEX SODIUM [Suspect]
     Active Substance: DIVALPROEX SODIUM
     Indication: Migraine
     Route: 048

REACTIONS (1)
  - Drug ineffective [Unknown]
